FAERS Safety Report 20534374 (Version 1)
Quarter: 2022Q1

REPORT INFORMATION
  Report Type: Spontaneous
  Country: CN (occurrence: CN)
  Receive Date: 20220302
  Receipt Date: 20220302
  Transmission Date: 20220424
  Serious: Yes (Other)
  Sender: FDA-Public Use
  Company Number: CN-BAXTER-2022BAX004498

PATIENT
  Age: 30 Year
  Sex: Female
  Weight: 49.9 kg

DRUGS (13)
  1. CYCLOPHOSPHAMIDE [Suspect]
     Active Substance: CYCLOPHOSPHAMIDE
     Indication: Acute lymphocytic leukaemia
     Dosage: CYCLOPHOSPHAMIDE FOR INJECTION 400 MG + 0.9% SODIUM CHLORIDE INJECTION 250 ML
     Route: 041
     Dates: start: 20211227, end: 20211230
  2. CYCLOPHOSPHAMIDE [Suspect]
     Active Substance: CYCLOPHOSPHAMIDE
     Dosage: DOSE REINTRODUCED
     Route: 041
  3. SODIUM CHLORIDE [Suspect]
     Active Substance: SODIUM CHLORIDE
     Indication: Medication dilution
     Dosage: 0.9% SODIUM CHLORIDE INJECTION 250 ML + CYCLOPHOSPHAMIDE FOR INJECTION 400 MG
     Route: 041
     Dates: start: 20211227, end: 20211230
  4. SODIUM CHLORIDE [Suspect]
     Active Substance: SODIUM CHLORIDE
     Dosage: SODIUM CHLORIDE INJECTION 45 ML + CYTARABINE HYDROCHLORIDE FOR INJECTION 50 MG
     Route: 037
     Dates: start: 20220103, end: 20220103
  5. SODIUM CHLORIDE [Suspect]
     Active Substance: SODIUM CHLORIDE
     Dosage: SODIUM CHLORIDE INJECTION 180 ML+ VINCRISTINE SULFATE FOR INJECTION 2 MG
     Route: 042
     Dates: start: 20211230, end: 20220106
  6. SODIUM CHLORIDE [Suspect]
     Active Substance: SODIUM CHLORIDE
     Dosage: DOSE REINTRODUCED FOR 0.9% SODIUM CHLORIDE INJECTION + CYCLOPHOSPHAMIDE FOR INJECTION
     Route: 041
  7. SODIUM CHLORIDE [Suspect]
     Active Substance: SODIUM CHLORIDE
     Dosage: DOSE REINTRODUCED FOR SODIUM CHLORIDE INJECTION + CYTARABINE HYDROCHLORIDE FOR INJECTION
     Route: 037
  8. SODIUM CHLORIDE [Suspect]
     Active Substance: SODIUM CHLORIDE
     Dosage: DOSE REINTRODUCED FOR SODIUM CHLORIDE INJECTION + VINCRISTINE SULFATE FOR INJECTION
     Route: 042
  9. CYTARABINE HYDROCHLORIDE [Suspect]
     Active Substance: CYTARABINE HYDROCHLORIDE
     Indication: Acute lymphocytic leukaemia
     Dosage: CYTARABINE HYDROCHLORIDE FOR INJECTION 50 MG + SODIUM CHLORIDE INJECTION 45 ML
     Route: 037
     Dates: start: 20220103, end: 20220103
  10. CYTARABINE HYDROCHLORIDE [Suspect]
     Active Substance: CYTARABINE HYDROCHLORIDE
     Dosage: DOSE REINTRODUCED
     Route: 037
  11. VINCRISTINE SULFATE [Suspect]
     Active Substance: VINCRISTINE SULFATE
     Indication: Acute lymphocytic leukaemia
     Dosage: VINCRISTINE SULFATE FOR INJECTION 2 MG + SODIUM CHLORIDE INJECTION 180 ML
     Route: 042
     Dates: start: 20211230, end: 20220106
  12. VINCRISTINE SULFATE [Suspect]
     Active Substance: VINCRISTINE SULFATE
     Dosage: DOSE REINTRODUCED
     Route: 042
  13. MOXALACTAM DISODIUM [Concomitant]
     Active Substance: MOXALACTAM DISODIUM
     Indication: Infection prophylaxis
     Route: 041
     Dates: start: 202201

REACTIONS (1)
  - Myelosuppression [Recovering/Resolving]

NARRATIVE: CASE EVENT DATE: 20220110
